FAERS Safety Report 24048412 (Version 2)
Quarter: 2024Q3

REPORT INFORMATION
  Report Type: Spontaneous
  Country: CH (occurrence: CH)
  Receive Date: 20240704
  Receipt Date: 20240801
  Transmission Date: 20241016
  Serious: Yes (Other)
  Sender: GLAXOSMITHKLINE
  Company Number: CH-GLAXOSMITHKLINE-CH2024GSK082297

PATIENT

DRUGS (2)
  1. LAMOTRIGINE [Suspect]
     Active Substance: LAMOTRIGINE
     Indication: Epilepsy
     Dosage: UNK
  2. VALPROIC ACID [Concomitant]
     Active Substance: VALPROIC ACID
     Indication: Jeavons syndrome
     Dosage: UNK

REACTIONS (18)
  - Drug reaction with eosinophilia and systemic symptoms [Recovered/Resolved]
  - Acute hepatic failure [Recovering/Resolving]
  - Multiple organ dysfunction syndrome [Recovering/Resolving]
  - Pyrexia [Recovered/Resolved]
  - Rash maculo-papular [Recovered/Resolved]
  - Swelling face [Recovered/Resolved]
  - Abdominal pain [Recovered/Resolved]
  - Diarrhoea [Recovered/Resolved]
  - Confusional state [Recovered/Resolved]
  - Blood disorder [Recovered/Resolved]
  - Cell death [Recovered/Resolved]
  - Inflammation [Recovered/Resolved]
  - Thrombocytopenia [Recovered/Resolved]
  - Condition aggravated [Recovered/Resolved]
  - Encephalopathy [Recovered/Resolved]
  - Eosinophilia [Recovered/Resolved]
  - Tubulointerstitial nephritis [Recovered/Resolved]
  - Cognitive disorder [Recovering/Resolving]
